FAERS Safety Report 9746322 (Version 2)
Quarter: 2013Q4

REPORT INFORMATION
  Report Type: Spontaneous
  Country: US (occurrence: US)
  Receive Date: 20131211
  Receipt Date: 20131217
  Transmission Date: 20140711
  Serious: Yes (Other)
  Sender: FDA-Public Use
  Company Number: US-RB-060866-13

PATIENT
  Age: 77 Year
  Sex: Female

DRUGS (4)
  1. MUCINEX FAST MAX DM LIQUID [Suspect]
     Indication: PRODUCT USED FOR UNKNOWN INDICATION
     Dosage: TOOK 1 DOSE ON 09-DEC-2013
     Route: 048
     Dates: start: 20131209
  2. TRAMADOL [Concomitant]
     Indication: SHOULDER OPERATION
  3. ULTRAM [Concomitant]
     Indication: SHOULDER OPERATION
  4. NEURONTIN [Concomitant]
     Indication: SHOULDER OPERATION

REACTIONS (5)
  - Infection [Not Recovered/Not Resolved]
  - Confusional state [Not Recovered/Not Resolved]
  - Nervousness [Not Recovered/Not Resolved]
  - Tremor [Not Recovered/Not Resolved]
  - Hyperhidrosis [Not Recovered/Not Resolved]
